FAERS Safety Report 18073263 (Version 62)
Quarter: 2025Q3

REPORT INFORMATION
  Report Type: Report from Study
  Country: US (occurrence: US)
  Receive Date: 20200727
  Receipt Date: 20250903
  Transmission Date: 20251021
  Serious: Yes (Other)
  Sender: TAKEDA
  Company Number: US-SHIRE-US202024012

PATIENT
  Age: 50 Year
  Sex: Female
  Weight: 82 kg

DRUGS (68)
  1. HUMAN IMMUNOGLOBULIN G [Suspect]
     Active Substance: HUMAN IMMUNOGLOBULIN G
     Indication: Immunodeficiency
  2. HUMAN IMMUNOGLOBULIN G [Suspect]
     Active Substance: HUMAN IMMUNOGLOBULIN G
     Indication: IgG deficiency
     Dosage: 30 GRAM, 3/MONTH
  3. HUMAN IMMUNOGLOBULIN G [Suspect]
     Active Substance: HUMAN IMMUNOGLOBULIN G
     Indication: Illness
  4. HUMAN IMMUNOGLOBULIN G [Suspect]
     Active Substance: HUMAN IMMUNOGLOBULIN G
     Indication: Epstein-Barr virus infection
     Dosage: 40 GRAM, Q2WEEKS
  5. HUMAN IMMUNOGLOBULIN G [Suspect]
     Active Substance: HUMAN IMMUNOGLOBULIN G
     Dosage: 30 GRAM, Q2WEEKS
  6. HUMAN IMMUNOGLOBULIN G [Suspect]
     Active Substance: HUMAN IMMUNOGLOBULIN G
  7. HUMAN IMMUNOGLOBULIN G [Suspect]
     Active Substance: HUMAN IMMUNOGLOBULIN G
  8. HUMAN IMMUNOGLOBULIN G [Suspect]
     Active Substance: HUMAN IMMUNOGLOBULIN G
  9. HEPARIN [Concomitant]
     Active Substance: HEPARIN SODIUM
  10. DIPHENHYDRAMINE HYDROCHLORIDE [Concomitant]
     Active Substance: DIPHENHYDRAMINE HYDROCHLORIDE
  11. BUTALBITAL, ACETAMINOPHEN, AND CAFFEINE [Concomitant]
     Active Substance: ACETAMINOPHEN\BUTALBITAL\CAFFEINE
  12. LYRICA [Concomitant]
     Active Substance: PREGABALIN
  13. VITAMIN D3 [Concomitant]
     Active Substance: CHOLECALCIFEROL
  14. SODIUM CHLORIDE [Concomitant]
     Active Substance: SODIUM CHLORIDE
  15. EPINEPHRINE [Concomitant]
     Active Substance: EPINEPHRINE
  16. KEVZARA [Concomitant]
     Active Substance: SARILUMAB
  17. HYDROXYCHLOROQUINE SULFATE [Concomitant]
     Active Substance: HYDROXYCHLOROQUINE SULFATE
  18. UBRELVY [Concomitant]
     Active Substance: UBROGEPANT
  19. LIDOCAINE\PRILOCAINE [Concomitant]
     Active Substance: LIDOCAINE\PRILOCAINE
  20. ZYRTEC [Concomitant]
     Active Substance: CETIRIZINE HYDROCHLORIDE
  21. ZONISAMIDE [Concomitant]
     Active Substance: ZONISAMIDE
  22. RANITIDINE [Concomitant]
     Active Substance: RANITIDINE
  23. STERILE WATER [Concomitant]
     Active Substance: WATER
  24. ACETAMINOPHEN [Concomitant]
     Active Substance: ACETAMINOPHEN
  25. TIZANIDINE HYDROCHLORIDE [Concomitant]
     Active Substance: TIZANIDINE HYDROCHLORIDE
  26. CYMBALTA [Concomitant]
     Active Substance: DULOXETINE HYDROCHLORIDE
  27. LEVOTHYROXINE SODIUM [Concomitant]
     Active Substance: LEVOTHYROXINE SODIUM
  28. SODIUM CHLORIDE [Concomitant]
     Active Substance: SODIUM CHLORIDE
  29. FENTANYL [Concomitant]
     Active Substance: FENTANYL
  30. EUCRISA [Concomitant]
     Active Substance: CRISABOROLE
  31. MINOCYCLINE HYDROCHLORIDE [Concomitant]
     Active Substance: MINOCYCLINE HYDROCHLORIDE
  32. DOXEPIN HYDROCHLORIDE [Concomitant]
     Active Substance: DOXEPIN HYDROCHLORIDE
  33. CATHFLO ACTIVASE [Concomitant]
     Active Substance: ALTEPLASE
  34. NUCYNTA [Concomitant]
     Active Substance: TAPENTADOL HYDROCHLORIDE
  35. BOTOX [Concomitant]
     Active Substance: ONABOTULINUMTOXINA
  36. PREDNISONE [Concomitant]
     Active Substance: PREDNISONE
     Dosage: 20 MILLIGRAM, QD
  37. PREDNISONE [Concomitant]
     Active Substance: PREDNISONE
     Dosage: 10 MILLIGRAM, QD
  38. SYNVISC-ONE [Concomitant]
     Active Substance: HYLAN G-F 20
  39. HUMIRA [Concomitant]
     Active Substance: ADALIMUMAB
  40. ELIQUIS [Concomitant]
     Active Substance: APIXABAN
  41. ZILRETTA [Concomitant]
     Active Substance: TRIAMCINOLONE ACETONIDE
  42. CALCIUM [Concomitant]
     Active Substance: CALCIUM
  43. METHSCOPOLAMINE BROMIDE [Concomitant]
     Active Substance: METHSCOPOLAMINE BROMIDE
  44. MAGNESIUM [Concomitant]
     Active Substance: MAGNESIUM
  45. ORENCIA [Concomitant]
     Active Substance: ABATACEPT
  46. LEFLUNOMIDE [Concomitant]
     Active Substance: LEFLUNOMIDE
  47. CALCIUM\CHOLECALCIFEROL [Concomitant]
     Active Substance: CALCIUM\CHOLECALCIFEROL
  48. HONEY [Concomitant]
     Active Substance: HONEY
  49. DOXYCYCLINE HYCLATE [Concomitant]
     Active Substance: DOXYCYCLINE HYCLATE
  50. AZELASTINE [Concomitant]
     Active Substance: AZELASTINE
  51. XYZAL [Concomitant]
     Active Substance: LEVOCETIRIZINE DIHYDROCHLORIDE
  52. CODEINE [Concomitant]
     Active Substance: CODEINE
  53. TRELEGY ELLIPTA [Concomitant]
     Active Substance: FLUTICASONE FUROATE\UMECLIDINIUM BROMIDE\VILANTEROL TRIFENATATE
  54. SUDAFED [Concomitant]
     Active Substance: PSEUDOEPHEDRINE HYDROCHLORIDE
  55. VITAMIN B [Concomitant]
     Active Substance: VITAMIN B
  56. AIMOVIG [Concomitant]
     Active Substance: ERENUMAB-AOOE
  57. ARMOUR THYROID [Concomitant]
     Active Substance: THYROID, PORCINE
  58. ACETAMINOPHEN\HYDROCODONE [Concomitant]
     Active Substance: ACETAMINOPHEN\HYDROCODONE
  59. BENZONATATE [Concomitant]
     Active Substance: BENZONATATE
  60. DIPHENHYDRAMINE [Concomitant]
     Active Substance: DIPHENHYDRAMINE
  61. CLINDAMYCIN PHOSPHATE [Concomitant]
     Active Substance: CLINDAMYCIN PHOSPHATE
  62. FIORICET [Concomitant]
     Active Substance: ACETAMINOPHEN\BUTALBITAL\CAFFEINE
  63. NEXLIZET [Concomitant]
     Active Substance: BEMPEDOIC ACID\EZETIMIBE
  64. NORETHINDRONE [Concomitant]
     Active Substance: NORETHINDRONE
  65. VASCEPA [Concomitant]
     Active Substance: ICOSAPENT ETHYL
  66. ESTRADIOL [Concomitant]
     Active Substance: ESTRADIOL
     Dosage: UNK UNK, 1/WEEK
  67. SIMPONI ARIA [Concomitant]
     Active Substance: GOLIMUMAB
  68. VITAMINS [Concomitant]
     Active Substance: VITAMINS

REACTIONS (68)
  - Neuropathy peripheral [Unknown]
  - Rheumatoid arthritis [Unknown]
  - Chest discomfort [Unknown]
  - Viral infection [Unknown]
  - Gastrointestinal infection [Unknown]
  - Respiratory tract congestion [Unknown]
  - Sinus congestion [Unknown]
  - Paranasal sinus discomfort [Unknown]
  - Nasal discharge discolouration [Unknown]
  - Paranasal sinus hypersecretion [Unknown]
  - Limb injury [Unknown]
  - Arthritis [Recovered/Resolved]
  - Tenderness [Unknown]
  - Peripheral swelling [Unknown]
  - Sinus pain [Unknown]
  - Productive cough [Unknown]
  - Sputum discoloured [Recovering/Resolving]
  - Infection [Unknown]
  - Wound complication [Unknown]
  - Impaired healing [Not Recovered/Not Resolved]
  - Animal scratch [Not Recovered/Not Resolved]
  - Infusion related reaction [Unknown]
  - Respiratory tract infection [Unknown]
  - Pleuritic pain [Recovered/Resolved]
  - Fall [Unknown]
  - Neck pain [Unknown]
  - Ophthalmic migraine [Unknown]
  - Non-pitting oedema [Unknown]
  - Upper-airway cough syndrome [Unknown]
  - Tonsillar hypertrophy [Unknown]
  - Post procedural infection [Unknown]
  - Oral lichen planus [Unknown]
  - Post procedural complication [Not Recovered/Not Resolved]
  - Tooth fracture [Unknown]
  - General physical health deterioration [Unknown]
  - Product dose omission issue [Unknown]
  - Device physical property issue [Unknown]
  - Sinus headache [Unknown]
  - Device occlusion [Unknown]
  - Product use in unapproved indication [Unknown]
  - Swelling face [Unknown]
  - Discomfort [Unknown]
  - Upper respiratory tract infection [Unknown]
  - Sinusitis [Unknown]
  - Swelling [Unknown]
  - Contusion [Unknown]
  - Oropharyngeal pain [Unknown]
  - Nasal congestion [Unknown]
  - Body temperature increased [Unknown]
  - Oedema peripheral [Unknown]
  - Wheezing [Unknown]
  - Lymphadenopathy [Unknown]
  - Pain in extremity [Unknown]
  - Burning sensation [Unknown]
  - Pain [Unknown]
  - Rash [Unknown]
  - Cough [Unknown]
  - Malaise [Unknown]
  - Feeling hot [Unknown]
  - Erythema [Unknown]
  - Migraine [Unknown]
  - Arthralgia [Unknown]
  - Pruritus [Recovering/Resolving]
  - Back pain [Unknown]
  - Pyrexia [Recovered/Resolved]
  - Headache [Recovered/Resolved]
  - Fatigue [Unknown]
  - Drug hypersensitivity [Unknown]

NARRATIVE: CASE EVENT DATE: 20171203
